FAERS Safety Report 11217505 (Version 1)
Quarter: 2015Q2

REPORT INFORMATION
  Report Type: Spontaneous
  Country: DE (occurrence: DE)
  Receive Date: 20150625
  Receipt Date: 20150625
  Transmission Date: 20150821
  Serious: Yes (Death)
  Sender: FDA-Public Use
  Company Number: GXKR2015DE002985

PATIENT

DRUGS (1)
  1. CEFTRIAXONE. [Suspect]
     Active Substance: CEFTRIAXONE
     Indication: PNEUMONIA
     Dosage: 2 G, UNK
     Route: 042

REACTIONS (3)
  - Blood pressure decreased [Fatal]
  - Anaphylactic shock [Fatal]
  - Bronchospasm [Fatal]

NARRATIVE: CASE EVENT DATE: 20150610
